FAERS Safety Report 15517638 (Version 1)
Quarter: 2018Q4

REPORT INFORMATION
  Report Type: Spontaneous
  Country: US (occurrence: US)
  Receive Date: 20181011
  Receipt Date: 20181011
  Transmission Date: 20190205
  Serious: No
  Sender: FDA-Public Use
  Company Number: None

PATIENT
  Age: 63 Year
  Sex: Female

DRUGS (3)
  1. AUSTEDO [Suspect]
     Active Substance: DEUTETRABENAZINE
     Indication: DYSKINESIA
     Dosage: WEEK 1 TAKE ONE 6MG TABL DAILY BY MOUTH
     Route: 048
     Dates: start: 20180809
  2. AUSTEDO [Suspect]
     Active Substance: DEUTETRABENAZINE
     Dosage: WEEK 3 TAKE ONE 6MG TABL DAILY BY MOUTH?
     Route: 048
     Dates: start: 20180809
  3. AUSTEDO [Suspect]
     Active Substance: DEUTETRABENAZINE
     Indication: DYSKINESIA
     Dosage: WEEK 3 TAKE ONE 6MG TABL DAILY BY MOUTH
     Route: 048
     Dates: start: 20180809

REACTIONS (2)
  - Memory impairment [None]
  - Fatigue [None]

NARRATIVE: CASE EVENT DATE: 20180809
